FAERS Safety Report 15517630 (Version 1)
Quarter: 2018Q4

REPORT INFORMATION
  Report Type: Spontaneous
  Country: US (occurrence: US)
  Receive Date: 20181011
  Receipt Date: 20181011
  Transmission Date: 20190205
  Serious: Yes (Other)
  Sender: FDA-Public Use
  Company Number: None

PATIENT
  Age: 66 Year
  Sex: Female
  Weight: 64.35 kg

DRUGS (1)
  1. IBANDRONATE [Suspect]
     Active Substance: IBANDRONATE SODIUM
     Indication: OSTEOPOROSIS
     Route: 048
     Dates: start: 20180926, end: 20180927

REACTIONS (5)
  - Influenza like illness [None]
  - Nausea [None]
  - Myalgia [None]
  - Arthralgia [None]
  - Malaise [None]

NARRATIVE: CASE EVENT DATE: 20180926
